FAERS Safety Report 7453107-9 (Version None)
Quarter: 2011Q2

REPORT INFORMATION
  Report Type: 
  Country: None (occurrence: None)
  Receive Date: 20110502
  Receipt Date: 20101115
  Transmission Date: 20111010
  Serious: No
  Sender: FDA-Public Use
  Company Number: US-ASTRAZENECA-2010SE54493

PATIENT
  Sex: Female

DRUGS (3)
  1. NEXIUM [Suspect]
     Indication: GASTROOESOPHAGEAL REFLUX DISEASE
     Route: 048
     Dates: start: 19970101
  2. ASTHMA MEDICATION [Concomitant]
     Indication: ASTHMA
  3. NEXIUM [Suspect]
     Route: 048
     Dates: start: 20101106

REACTIONS (5)
  - THERAPEUTIC RESPONSE UNEXPECTED [None]
  - PRURITUS [None]
  - DYSPNOEA [None]
  - DRUG DOSE OMISSION [None]
  - FACIAL PAIN [None]
